FAERS Safety Report 9586539 (Version 2)
Quarter: 2013Q4

REPORT INFORMATION
  Report Type: Spontaneous
  Country: JP (occurrence: JP)
  Receive Date: 20131003
  Receipt Date: 20131003
  Transmission Date: 20140711
  Serious: Yes (Hospitalization)
  Sender: FDA-Public Use
  Company Number: JP-ASTELLAS-2011JP008909

PATIENT
  Age: 52 Year
  Sex: Male

DRUGS (19)
  1. PROGRAF [Suspect]
     Indication: POLYMYOSITIS
     Dosage: 5 MG, UNKNOWN/D
     Route: 065
     Dates: start: 2010
  2. PREDNISOLONE [Concomitant]
     Indication: POLYMYOSITIS
     Dosage: 1 MG/KG, UNKNOWN/D
     Route: 065
  3. PREDNISOLONE [Concomitant]
     Dosage: 20 MG, UNKNOWN/D
     Route: 065
  4. PREDNISOLONE [Concomitant]
     Dosage: 15 MG, UNKNOWN/D
     Route: 065
  5. METHOTREXATE [Concomitant]
     Indication: POLYMYOSITIS
     Route: 065
  6. METHOTREXATE [Concomitant]
     Route: 065
  7. METHOTREXATE [Concomitant]
     Dosage: 6 MG, WEEKLY
     Route: 065
     Dates: start: 201101
  8. METHOTREXATE [Concomitant]
     Dosage: 8 MG, UNKNOWN/D
     Route: 065
  9. METHOTREXATE [Concomitant]
     Dosage: 10 MG, UNKNOWN/D
     Route: 065
  10. CYCLOSPORINE [Concomitant]
     Indication: POLYMYOSITIS
     Route: 065
  11. CYCLOSPORINE [Concomitant]
     Route: 065
  12. STEROID [Concomitant]
     Indication: POLYMYOSITIS
     Route: 065
  13. STEROID [Concomitant]
     Route: 065
  14. IMMUNOGLOBULIN [Concomitant]
     Indication: POLYMYOSITIS
     Route: 042
  15. IMMUNOGLOBULIN [Concomitant]
     Route: 042
  16. INFLIXIMAB [Concomitant]
     Indication: POLYMYOSITIS
     Dosage: 3 MG/KG, UNKNOWN/D
     Route: 065
  17. INFLIXIMAB [Concomitant]
     Dosage: 3 MG/KG, UNKNOWN/D
     Route: 065
  18. CYCLOPHOSPHAMIDE [Concomitant]
     Route: 042
  19. RITUXIMAB [Concomitant]
     Indication: POLYMYOSITIS
     Dosage: 500 MG, WEEKLY
     Route: 065

REACTIONS (2)
  - Drug ineffective for unapproved indication [Unknown]
  - Polymyositis [Unknown]
